FAERS Safety Report 24641180 (Version 1)
Quarter: 2024Q4

REPORT INFORMATION
  Report Type: Spontaneous
  Country: US (occurrence: None)
  Receive Date: 20241119
  Receipt Date: 20241119
  Transmission Date: 20250115
  Serious: No
  Sender: Public
  Company Number: None

PATIENT
  Age: 84 Year
  Sex: Female
  Weight: 40.82 kg

DRUGS (1)
  1. COSENTYX [Suspect]
     Active Substance: SECUKINUMAB
     Indication: Psoriatic arthropathy
     Dosage: INJECT 150MG (1 PEN) SUBCUTANEOUSLY ON DAY 28 (DOSE 5) THEN EVERY 4 WEEKS AS DIRECTED. ?
     Route: 058
     Dates: start: 202404

REACTIONS (1)
  - Urinary tract infection [None]
